FAERS Safety Report 17324197 (Version 5)
Quarter: 2020Q3

REPORT INFORMATION
  Report Type: Spontaneous
  Country: US (occurrence: US)
  Receive Date: 20200127
  Receipt Date: 20200928
  Transmission Date: 20201102
  Serious: Yes (Other)
  Sender: FDA-Public Use
  Company Number: US-GILEAD-2020-0448289

PATIENT
  Age: 53 Year
  Sex: Male
  Weight: 88.89 kg

DRUGS (33)
  1. TENOFOVIR DISOPROXIL FUMARATE. [Suspect]
     Active Substance: TENOFOVIR DISOPROXIL FUMARATE
     Indication: HIV INFECTION
     Dosage: UNK
     Route: 048
     Dates: start: 20190220
  2. VANCOMYCIN [Concomitant]
     Active Substance: VANCOMYCIN
  3. PEG 3350 [Concomitant]
     Active Substance: POLYETHYLENE GLYCOL 3350
  4. PREDNISOLONE. [Concomitant]
     Active Substance: PREDNISOLONE
  5. TIVICAY [Concomitant]
     Active Substance: DOLUTEGRAVIR SODIUM
  6. TRAMADOL. [Concomitant]
     Active Substance: TRAMADOL
  7. NEPHPLEX RX [Concomitant]
     Active Substance: ASCORBIC ACID\BIOTIN\COBALAMIN\FOLIC ACID\NIACINAMIDE\PANTOTHENIC ACID\PYRIDOXINE HYDROCHLORIDE\RIBOFLAVIN\THIAMINE\ZINC OXIDE
  8. VITAMIN D [VITAMIN D NOS] [Concomitant]
     Active Substance: VITAMIN D NOS
  9. CORTISONE [Concomitant]
     Active Substance: CORTISONE
  10. OMEPRAZOLE. [Concomitant]
     Active Substance: OMEPRAZOLE
  11. PRAVASTATIN. [Concomitant]
     Active Substance: PRAVASTATIN
  12. SIMVASTATIN. [Concomitant]
     Active Substance: SIMVASTATIN
  13. NORVIR [Concomitant]
     Active Substance: RITONAVIR
  14. ZIAGEN [Concomitant]
     Active Substance: ABACAVIR SULFATE
  15. MINOCYCLINE [Concomitant]
     Active Substance: MINOCYCLINE HYDROCHLORIDE
  16. MULTIVITAMINS [VITAMINS NOS] [Concomitant]
     Active Substance: VITAMINS
  17. BACTRIM [Concomitant]
     Active Substance: SULFAMETHOXAZOLE\TRIMETHOPRIM
  18. CYCLOSPORINE. [Concomitant]
     Active Substance: CYCLOSPORINE
  19. HEPARIN [Concomitant]
     Active Substance: HEPARIN SODIUM
  20. ACETAMINOPHEN. [Concomitant]
     Active Substance: ACETAMINOPHEN
  21. VIREAD [Suspect]
     Active Substance: TENOFOVIR DISOPROXIL FUMARATE
     Dosage: UNK
     Route: 048
     Dates: start: 20080307, end: 20190220
  22. GUAIFENESIN. [Concomitant]
     Active Substance: GUAIFENESIN
  23. VIREAD [Suspect]
     Active Substance: TENOFOVIR DISOPROXIL FUMARATE
     Indication: HIV INFECTION
     Dosage: UNK
     Route: 048
     Dates: start: 200802, end: 20190220
  24. LASIX [Concomitant]
     Active Substance: FUROSEMIDE
  25. EMTRIVA [Concomitant]
     Active Substance: EMTRICITABINE
  26. PREZISTA [Concomitant]
     Active Substance: DARUNAVIR ETHANOLATE
  27. RETROVIR [Concomitant]
     Active Substance: ZIDOVUDINE
  28. ATARAX ANTI ITCH LOTION [Concomitant]
  29. CALCIUM CARBONATE. [Concomitant]
     Active Substance: CALCIUM CARBONATE
  30. SEVELAMER HCL [Concomitant]
     Active Substance: SEVELAMER HYDROCHLORIDE
  31. ASPIRIN [ACETYLSALICYLIC ACID] [Concomitant]
     Active Substance: ASPIRIN
  32. ESOMEPRAZOLE. [Concomitant]
     Active Substance: ESOMEPRAZOLE MAGNESIUM
  33. CLOBETASOL [Concomitant]
     Active Substance: CLOBETASOL

REACTIONS (9)
  - Osteoporosis [Not Recovered/Not Resolved]
  - Blood creatinine increased [Not Recovered/Not Resolved]
  - Pain [Unknown]
  - Tooth injury [Unknown]
  - Osteopenia [Not Recovered/Not Resolved]
  - Emotional distress [Unknown]
  - End stage renal disease [Not Recovered/Not Resolved]
  - Chronic kidney disease [Not Recovered/Not Resolved]
  - Osteonecrosis [Not Recovered/Not Resolved]

NARRATIVE: CASE EVENT DATE: 20080211
